FAERS Safety Report 4298363-3 (Version None)
Quarter: 2004Q1

REPORT INFORMATION
  Report Type: 
  Country: None (occurrence: None)
  Receive Date: 20040218
  Receipt Date: 20030414
  Transmission Date: 20041129
  Serious: Yes (Other)
  Sender: FDA-Public Use
  Company Number: US-BRISTOL-MYERS SQUIBB COMPANY-12251070

PATIENT
  Sex: Female

DRUGS (1)
  1. STADOL [Suspect]
     Route: 045

REACTIONS (1)
  - DEPENDENCE [None]
